FAERS Safety Report 14858872 (Version 3)
Quarter: 2021Q3

REPORT INFORMATION
  Report Type: Spontaneous
  Country: US (occurrence: US)
  Receive Date: 20180508
  Receipt Date: 20210903
  Transmission Date: 20211014
  Serious: Yes (Disabling)
  Sender: FDA-Public Use
  Company Number: US-TEVA-824518USA

PATIENT
  Age: 31 Year
  Sex: Female

DRUGS (16)
  1. PALONOSETRON HCI [Concomitant]
     Dosage: 10.25 MG INTRAVENOUS DAILY
     Route: 042
  2. AMBIEN [Concomitant]
     Active Substance: ZOLPIDEM TARTRATE
     Route: 048
     Dates: start: 20080101
  3. IMODIUM A?D [Concomitant]
     Active Substance: LOPERAMIDE HYDROCHLORIDE
     Dosage: 2 (2 MG) TABLET, CHEWABLE ORAL DAILY PRN
     Route: 048
  4. COMPAZINE [Concomitant]
     Active Substance: PROCHLORPERAZINE MALEATE
     Dosage: 10 MG TABLET ORAL Q 6 HOURS PRN
     Route: 048
  5. HERCEPTIN [Suspect]
     Active Substance: TRASTUZUMAB
     Indication: BREAST CANCER FEMALE
     Dosage: NUMBER OF CYCLE ? 06, FREQUENCY ? EVERY WEEK ?142 MG (AT 2 MG/KG) INTRAVENOUS
     Route: 042
     Dates: start: 20130605, end: 20130918
  6. PERCOCET [Concomitant]
     Active Substance: ACETAMINOPHEN\OXYCODONE HYDROCHLORIDE
     Dosage: 1?2 DOSE(S) (OF 5?325 MG) TABLET ORAL Q 4 TO 6 HOURS PRN
     Route: 048
  7. CARBOPLATIN. [Suspect]
     Active Substance: CARBOPLATIN
     Indication: BREAST CANCER FEMALE
     Dosage: NUMBER OF CYCLE ? 06, FREQUENCY ? EVERY WEEK ?725 MG (AT 4.1 AUC (CRGL)) INTRAVENOUS
     Route: 042
     Dates: start: 20130605, end: 20130918
  8. DEXAMETHASONE SODIUM PHOSPHATE. [Concomitant]
     Active Substance: DEXAMETHASONE SODIUM PHOSPHATE
     Dosage: 20 MG INTRAVENOUS DAILY
     Route: 042
  9. UNISOM SLEEPTABS [Concomitant]
     Active Substance: DOXYLAMINE SUCCINATE
     Dosage: AT BEDTIME
     Route: 048
  10. DOCETAXEL SAGENT [Suspect]
     Active Substance: DOCETAXEL
     Indication: BREAST CANCER FEMALE
     Dosage: 130 MG (AT 75.6 MG/M2) INTRAVENOUS, NUMBER OF CYCLES?06?FREQUENCY?EVERY WEEK
     Route: 042
     Dates: start: 20130605, end: 20130918
  11. LOMOTIL [Concomitant]
     Active Substance: ATROPINE SULFATE\DIPHENOXYLATE HYDROCHLORIDE
     Dosage: 1 TABLET (OF 2.5?0.025 MG) TABLET ORAL DAILY
     Route: 048
  12. DOCETAXEL SANOFI [Suspect]
     Active Substance: DOCETAXEL
     Indication: BREAST CANCER FEMALE
     Dosage: NUMBER OF CYCLE ? 06, FREQUENCY ? EVERY WEEK
     Route: 042
     Dates: start: 20130605, end: 20130918
  13. ACETAMINOPHEN. [Concomitant]
     Active Substance: ACETAMINOPHEN
     Dosage: 650 MG CAPSULE ORAL DAILY FOR 1 DAY PRN
     Route: 048
  14. TAMOXIFEN [Concomitant]
     Active Substance: TAMOXIFEN
     Route: 065
     Dates: start: 20080101
  15. VICODIN [Concomitant]
     Active Substance: ACETAMINOPHEN\HYDROCODONE BITARTRATE
     Route: 065
     Dates: start: 20080101
  16. PEGFILGRASTIM [Concomitant]
     Active Substance: PEGFILGRASTIM
     Dosage: 6 MG SUBCUTANEOUS DAILY FOR 1 DAY
     Route: 058

REACTIONS (6)
  - Madarosis [Not Recovered/Not Resolved]
  - Weight decreased [Unknown]
  - Diarrhoea [Unknown]
  - Hair texture abnormal [Not Recovered/Not Resolved]
  - Alopecia areata [Not Recovered/Not Resolved]
  - Hair colour changes [Not Recovered/Not Resolved]

NARRATIVE: CASE EVENT DATE: 2013
